FAERS Safety Report 18174563 (Version 1)
Quarter: 2020Q3

REPORT INFORMATION
  Report Type: Spontaneous
  Country: US (occurrence: US)
  Receive Date: 20200820
  Receipt Date: 20200820
  Transmission Date: 20201103
  Serious: No
  Sender: FDA-Public Use
  Company Number: None

PATIENT
  Age: 74 Year
  Sex: Female

DRUGS (1)
  1. DEFINITY [Suspect]
     Active Substance: PERFLUTREN

REACTIONS (2)
  - Back pain [None]
  - Discomfort [None]

NARRATIVE: CASE EVENT DATE: 20200806
